FAERS Safety Report 5197766-2 (Version None)
Quarter: 2007Q1

REPORT INFORMATION
  Report Type: 
  Country: None (occurrence: None)
  Receive Date: 20070103
  Receipt Date: 20060731
  Transmission Date: 20070707
  Serious: Yes (Hospitalization, Disabling, Other)
  Sender: FDA-Public Use
  Company Number: US-MERCK-0607USA00937

PATIENT
  Age: 47 Year
  Sex: Female
  Weight: 38 kg

DRUGS (29)
  1. FOSAMAX [Suspect]
     Indication: OSTEOPOROSIS
     Route: 048
     Dates: start: 19960101, end: 19980101
  2. VITAMINS (UNSPECIFIED) [Concomitant]
     Indication: ROUTINE HEALTH MAINTENANCE
     Route: 048
     Dates: start: 19960101
  3. PLAQUENIL [Concomitant]
     Indication: SYSTEMIC LUPUS ERYTHEMATOSUS
     Route: 048
     Dates: start: 19820101
  4. LEVOTHROID [Concomitant]
     Indication: HYPOTHYROIDISM
     Route: 048
     Dates: start: 19780101
  5. PREDNISONE [Concomitant]
     Indication: HEPATITIS
     Route: 048
     Dates: start: 19820101
  6. FLEET (MINERAL OIL) [Concomitant]
     Indication: CONSTIPATION
     Route: 054
     Dates: start: 19980101
  7. ATIVAN [Concomitant]
     Route: 065
     Dates: start: 20040101
  8. BENADRYL [Concomitant]
     Route: 065
  9. LIDODERM [Concomitant]
     Route: 065
  10. PERI-COLACE [Concomitant]
     Route: 065
     Dates: start: 19990101
  11. PERIDEX [Concomitant]
     Route: 065
  12. PHENERGAN (PROMETHAZINE HYDROCHLORIDE) [Concomitant]
     Route: 065
  13. PHENERGAN TABLETS/SUPPOSITORIES [Concomitant]
     Route: 065
  14. PREVACID [Concomitant]
     Route: 065
     Dates: start: 19990101
  15. PROGRAF [Concomitant]
     Route: 065
     Dates: start: 19980101
  16. REGLAN [Concomitant]
     Route: 065
  17. RITALIN [Concomitant]
     Route: 065
     Dates: start: 19990101
  18. ZOFRAN [Concomitant]
     Route: 065
  19. ZOLOFT [Concomitant]
     Route: 065
     Dates: start: 20020101
  20. CALCIUM (UNSPECIFIED) [Concomitant]
     Route: 065
     Dates: start: 20010101
  21. FERROUS SULFATE [Concomitant]
     Route: 065
     Dates: start: 20040101
  22. GANCICLOVIR [Concomitant]
     Route: 065
  23. NYSTATIN [Concomitant]
     Route: 065
  24. OXYCODONE [Concomitant]
     Route: 065
     Dates: start: 19940101
  25. TEMAZEPAM [Concomitant]
     Route: 065
  26. NORTRIPTYLINE [Concomitant]
     Route: 065
  27. DIDRONEL [Suspect]
     Indication: OSTEOPOROSIS
     Route: 048
     Dates: start: 19990101, end: 20010101
  28. ACTONEL [Suspect]
     Indication: OSTEOPOROSIS
     Route: 048
     Dates: start: 20010101, end: 20031001
  29. ACTONEL [Suspect]
     Route: 048
     Dates: start: 20050401, end: 20060601

REACTIONS (21)
  - ADVERSE EVENT [None]
  - ANAEMIA [None]
  - CONVULSION [None]
  - CYTOMEGALOVIRUS CHORIORETINITIS [None]
  - CYTOMEGALOVIRUS OESOPHAGITIS [None]
  - FALL [None]
  - GASTROOESOPHAGEAL REFLUX DISEASE [None]
  - HEPATIC CIRRHOSIS [None]
  - JAW DISORDER [None]
  - LYMPHOPROLIFERATIVE DISORDER [None]
  - MENINGITIS [None]
  - MOUTH ULCERATION [None]
  - NEPHROLITHIASIS [None]
  - OSTEONECROSIS [None]
  - PAIN [None]
  - PELVIC FRACTURE [None]
  - PRURITUS [None]
  - RENAL FAILURE [None]
  - STOMATITIS [None]
  - TOOTH DISCOLOURATION [None]
  - TOOTH DISORDER [None]
